FAERS Safety Report 25979213 (Version 1)
Quarter: 2025Q4

REPORT INFORMATION
  Report Type: Spontaneous
  Country: GB (occurrence: GB)
  Receive Date: 20251030
  Receipt Date: 20251030
  Transmission Date: 20260118
  Serious: Yes (Life-Threatening, Other)
  Sender: BIOTEST
  Company Number: GB-OCTA-2025000936

PATIENT
  Age: 60 Year
  Sex: Male

DRUGS (9)
  1. HUMAN IMMUNOGLOBULIN G [Suspect]
     Active Substance: HUMAN IMMUNOGLOBULIN G
     Indication: Transplant rejection
  2. ALBUMIN HUMAN [Suspect]
     Active Substance: ALBUMIN HUMAN
     Indication: Product used for unknown indication
     Dosage: 100 ML X 3
  3. ALBUMIN HUMAN [Suspect]
     Active Substance: ALBUMIN HUMAN
     Indication: Product used for unknown indication
     Dosage: 500 ML X 2
  4. ALBUMIN HUMAN [Suspect]
     Active Substance: ALBUMIN HUMAN
  5. ALBUMIN HUMAN [Suspect]
     Active Substance: ALBUMIN HUMAN
     Dosage: 500 ML X 4
  6. ALBUMIN HUMAN [Suspect]
     Active Substance: ALBUMIN HUMAN
  7. ALBUMIN HUMAN [Suspect]
     Active Substance: ALBUMIN HUMAN
     Dosage: 500 X 2
  8. INSULIN NOS [Concomitant]
     Active Substance: INSULIN NOS
     Indication: Diabetes mellitus
  9. METHYLPREDNISOLONE [Concomitant]
     Active Substance: METHYLPREDNISOLONE
     Indication: Transplant rejection

REACTIONS (2)
  - Hepatitis E [Not Recovered/Not Resolved]
  - Off label use [Unknown]

NARRATIVE: CASE EVENT DATE: 20210922
